FAERS Safety Report 10556490 (Version 1)
Quarter: 2014Q4

REPORT INFORMATION
  Report Type: Spontaneous
  Country: US (occurrence: US)
  Receive Date: 20141031
  Receipt Date: 20141031
  Transmission Date: 20150529
  Serious: Yes (Other)
  Sender: FDA-Public Use
  Company Number: US-BEH-2014045793

PATIENT
  Sex: Female
  Weight: 49 kg

DRUGS (38)
  1. ADVAIR HFA [Concomitant]
     Active Substance: FLUTICASONE PROPIONATE\SALMETEROL XINAFOATE
  2. TYLENOL PM [Concomitant]
     Active Substance: ACETAMINOPHEN\DIPHENHYDRAMINE
  3. ZEMAIRA [Suspect]
     Active Substance: .ALPHA.1-PROTEINASE INHIBITOR HUMAN
     Indication: EMPHYSEMA
     Route: 042
  4. HEPARIN [Concomitant]
     Active Substance: HEPARIN SODIUM
  5. PREDNISONE. [Concomitant]
     Active Substance: PREDNISONE
  6. DOXYCYCLINE. [Concomitant]
     Active Substance: DOXYCYCLINE
  7. VIBRAMYCIN [Concomitant]
     Active Substance: DOXYCYCLINE
  8. TOBI [Concomitant]
     Active Substance: TOBRAMYCIN
  9. VITAMIN B12 [Concomitant]
     Active Substance: CYANOCOBALAMIN
  10. ZEMAIRA [Suspect]
     Active Substance: .ALPHA.1-PROTEINASE INHIBITOR HUMAN
     Indication: ESSENTIAL HYPERTENSION
     Route: 042
  11. CALCIUM + D [Concomitant]
     Active Substance: CALCIUM\VITAMIN D
  12. POTASSIUM [Concomitant]
     Active Substance: POTASSIUM
  13. PATADAY [Concomitant]
     Active Substance: OLOPATADINE HYDROCHLORIDE
  14. BRIMONIDINE [Concomitant]
     Active Substance: BRIMONIDINE\BRIMONIDINE TARTRATE
  15. STERILE WATER [Concomitant]
     Active Substance: WATER
  16. GABAPENTIN. [Concomitant]
     Active Substance: GABAPENTIN
  17. NEXIUM [Concomitant]
     Active Substance: ESOMEPRAZOLE MAGNESIUM
  18. ZEMAIRA [Suspect]
     Active Substance: .ALPHA.1-PROTEINASE INHIBITOR HUMAN
     Indication: ALPHA-1 ANTI-TRYPSIN DEFICIENCY
     Route: 042
  19. ALBUTEROL. [Concomitant]
     Active Substance: ALBUTEROL
  20. LUMIGAN [Concomitant]
     Active Substance: BIMATOPROST
  21. ASPIRIN. [Concomitant]
     Active Substance: ASPIRIN
  22. ZOFRAN [Concomitant]
     Active Substance: ONDANSETRON HYDROCHLORIDE
  23. EPIPEN [Concomitant]
     Active Substance: EPINEPHRINE
  24. CIPROFLOXACIN. [Concomitant]
     Active Substance: CIPROFLOXACIN
  25. SODIUM CHLORIDE. [Concomitant]
     Active Substance: SODIUM CHLORIDE
  26. BIOFLAVONOIDS [Concomitant]
     Active Substance: BIOFLAVONOIDS
  27. SOTALOL. [Concomitant]
     Active Substance: SOTALOL
  28. VITAMIN C [Concomitant]
     Active Substance: ASCORBIC ACID
  29. XANAX [Concomitant]
     Active Substance: ALPRAZOLAM
  30. TRAMADOL [Concomitant]
     Active Substance: TRAMADOL
  31. IPRATROPIUM BR [Concomitant]
  32. ZEMAIRA [Suspect]
     Active Substance: .ALPHA.1-PROTEINASE INHIBITOR HUMAN
     Indication: ESSENTIAL HYPERTENSION
     Route: 042
  33. LASIX [Concomitant]
     Active Substance: FUROSEMIDE
  34. AMLODIPINE [Concomitant]
     Active Substance: AMLODIPINE BESYLATE
  35. CATHFLO ACTIVASE [Concomitant]
     Active Substance: ALTEPLASE
  36. OXYGEN. [Concomitant]
     Active Substance: OXYGEN
  37. DIPHENHYDRAMINE [Concomitant]
     Active Substance: DIPHENHYDRAMINE
  38. GUAIFENESIN. [Concomitant]
     Active Substance: GUAIFENESIN

REACTIONS (2)
  - Fall [Unknown]
  - Upper limb fracture [Unknown]
